FAERS Safety Report 7368608 (Version 2)
Quarter: 2014Q3

REPORT INFORMATION
  Report Type: Report from Study
  Country: ES (occurrence: ES)
  Receive Date: 20100428
  Receipt Date: 20140718
  Transmission Date: 20150326
  Serious: Yes (Death, Hospitalization, Other)
  Sender: FDA-Public Use
  Company Number: ES-SANOFI-AVENTIS-200113407EU

PATIENT
  Age: 63 Year
  Sex: Female

DRUGS (5)
  1. ADRIAMYCIN [Suspect]
     Active Substance: DOXORUBICIN HYDROCHLORIDE
     Indication: BREAST CANCER
     Route: 042
     Dates: start: 20000315, end: 20000628
  2. CYTOXAN [Suspect]
     Active Substance: CYCLOPHOSPHAMIDE
     Indication: BREAST CANCER
     Route: 042
     Dates: start: 20000315, end: 20000628
  3. DOCETAXEL [Suspect]
     Active Substance: DOCETAXEL
     Indication: BREAST CANCER
     Route: 042
     Dates: start: 20000315, end: 20000628
  4. CARVEDILOL. [Concomitant]
     Active Substance: CARVEDILOL
     Indication: CARDIOMYOPATHY
     Dates: end: 20090615
  5. DIGOXINE [Concomitant]
     Active Substance: DIGOXIN
     Indication: CARDIOMYOPATHY
     Dates: end: 20090615

REACTIONS (8)
  - Pleural effusion [Recovering/Resolving]
  - Renal failure chronic [Fatal]
  - Hypotension [Fatal]
  - Ventricular dysfunction [Fatal]
  - Cardiac failure congestive [Fatal]
  - Dyspnoea [Recovered/Resolved with Sequelae]
  - Congestive cardiomyopathy [Fatal]
  - Generalised oedema [Fatal]

NARRATIVE: CASE EVENT DATE: 20010510
